FAERS Safety Report 16989686 (Version 1)
Quarter: 2019Q4

REPORT INFORMATION
  Report Type: Spontaneous
  Country: CA (occurrence: CA)
  Receive Date: 20191104
  Receipt Date: 20191104
  Transmission Date: 20200122
  Serious: Yes (Other)
  Sender: FDA-Public Use
  Company Number: CA-PFIZER INC-2019467708

PATIENT
  Age: 83 Year
  Sex: Female

DRUGS (4)
  1. MYRBETRIQ [Suspect]
     Active Substance: MIRABEGRON
     Indication: HYPERTONIC BLADDER
     Dosage: 50 MG, 1X/DAY
  2. LORAZEPAM. [Suspect]
     Active Substance: LORAZEPAM
     Indication: DEPRESSION
     Dosage: UNK
  3. MYRBETRIQ [Suspect]
     Active Substance: MIRABEGRON
     Dosage: 25 MG, 1X/DAY
  4. ACETAMINOPHEN AND CODEINE [Concomitant]
     Active Substance: ACETAMINOPHEN\CODEINE PHOSPHATE
     Dosage: UNK

REACTIONS (23)
  - Balance disorder [Unknown]
  - Constipation [Unknown]
  - Product dose omission [Unknown]
  - Abdominal distension [Unknown]
  - Fatigue [Unknown]
  - Fall [Unknown]
  - Restless legs syndrome [Unknown]
  - Sleep disorder [Unknown]
  - Stress [Unknown]
  - Depression [Unknown]
  - Arthralgia [Unknown]
  - Flatulence [Unknown]
  - Pain in extremity [Unknown]
  - General physical health deterioration [Unknown]
  - Dizziness [Unknown]
  - Electrolyte imbalance [Unknown]
  - Mood altered [Unknown]
  - Osteoarthritis [Unknown]
  - Drug ineffective [Unknown]
  - Diarrhoea [Unknown]
  - Alopecia [Unknown]
  - Hypoacusis [Unknown]
  - Muscle spasms [Unknown]
